FAERS Safety Report 23803680 (Version 1)
Quarter: 2024Q2

REPORT INFORMATION
  Report Type: Spontaneous
  Country: CN (occurrence: CN)
  Receive Date: 20240501
  Receipt Date: 20240501
  Transmission Date: 20240716
  Serious: Yes (Hospitalization)
  Sender: FDA-Public Use
  Company Number: CN-SA-SAC20240430000808

PATIENT
  Age: 53 Year
  Sex: Male

DRUGS (4)
  1. CLOPIDOGREL BISULFATE [Suspect]
     Active Substance: CLOPIDOGREL BISULFATE
     Indication: Coronary artery disease
     Dosage: 20 MG, TOTAL
     Route: 048
     Dates: start: 20240420, end: 20240422
  2. ATORVASTATIN CALCIUM [Suspect]
     Active Substance: ATORVASTATIN CALCIUM
     Indication: Coronary artery disease
     Dosage: 20 MG, TOTAL
     Route: 048
     Dates: start: 20240420, end: 20240422
  3. HERBALS\PANAX NOTOGINSENG ROOT EXTRACT [Suspect]
     Active Substance: HERBALS\PANAX NOTOGINSENG ROOT EXTRACT
     Indication: Circulating anticoagulant
     Dosage: 200 MG, TOTAL
     Route: 041
     Dates: start: 20240420, end: 20240423
  4. VITAMIN C [Concomitant]
     Active Substance: ASCORBIC ACID
     Indication: Capillary permeability
     Dosage: 1 G
     Route: 065

REACTIONS (3)
  - Rash pruritic [Recovering/Resolving]
  - Haemorrhage [Recovering/Resolving]
  - Pruritus [Recovering/Resolving]

NARRATIVE: CASE EVENT DATE: 20240422
